FAERS Safety Report 6184616-0 (Version None)
Quarter: 2009Q2

REPORT INFORMATION
  Report Type: 
  Country: None (occurrence: None)
  Receive Date: 20090508
  Receipt Date: 20090506
  Transmission Date: 20091009
  Serious: Yes (Other)
  Sender: FDA-Public Use
  Company Number: PHHO2006US01591

PATIENT
  Sex: Male
  Weight: 92.5 kg

DRUGS (6)
  1. CIBADREX T29368+ [Suspect]
     Indication: HYPERTENSION
     Dosage: LEVEL 1
     Route: 048
     Dates: start: 20041019, end: 20041101
  2. CIBADREX T29368+ [Suspect]
     Dosage: LEVEL 2
     Route: 048
     Dates: start: 20041102, end: 20060110
  3. CIBADREX T29368+ [Suspect]
     Dosage: UNK, NO TREATMENT
     Dates: start: 20060111, end: 20060112
  4. CIBADREX T29368+ [Suspect]
     Dosage: UNK, LEVEL 2
     Route: 048
     Dates: start: 20060113, end: 20060123
  5. CIBADREX T29368+ [Suspect]
     Dosage: UNK, LEVEL 1
     Route: 048
     Dates: start: 20060124, end: 20060209
  6. BENAZEPRIL HYDROCHLORIDE [Suspect]
     Dosage: 10 MG, UNK
     Dates: start: 20060212, end: 20060603

REACTIONS (4)
  - DIARRHOEA [None]
  - DIZZINESS [None]
  - GASTROENTERITIS [None]
  - SYNCOPE [None]
